FAERS Safety Report 10244515 (Version 1)
Quarter: 2014Q1

REPORT INFORMATION
  Report Type: Spontaneous
  Country: US (occurrence: None)
  Receive Date: 20140306
  Receipt Date: 20140306
  Transmission Date: 20141002
  Serious: Yes (Life-Threatening, Other)
  Sender: FDA-Public Use
  Company Number: 163-21880-13020122

PATIENT
  Age: 77 Year
  Sex: Female

DRUGS (7)
  1. REVLIMID (LENALIDOMIDE) (5 MILLIGRAM, CAPSULES) [Suspect]
     Indication: MYELODYSPLASTIC SYNDROME
     Route: 048
     Dates: start: 20120725, end: 20120914
  2. BLOOD TRANSFUSION (BLOOD TRANSFUSION, AUXILIARY PRODUCTS) (UNKNOWN) [Concomitant]
  3. DIAVAN (UNKNOWN) [Concomitant]
  4. VITAMIN B12 (CYANOCOBALAMIN) (UNKNOWN) [Concomitant]
  5. IMMODIUM (LOPERAMIDE) (UNKNOWN) [Concomitant]
  6. KLOR CON (POTASSIUM CHLORIDE) (UNKNOWN) [Concomitant]
  7. FLEXERIL (CYCLOBENZAPRINE HYDROCHLORIDE) (UNKNOWN) [Concomitant]

REACTIONS (3)
  - Drug ineffective [None]
  - Urinary tract infection [None]
  - Fatigue [None]
